FAERS Safety Report 25138829 (Version 2)
Quarter: 2025Q1

REPORT INFORMATION
  Report Type: Spontaneous
  Country: US (occurrence: US)
  Receive Date: 20250331
  Receipt Date: 20250331
  Transmission Date: 20250409
  Serious: No
  Sender: ROCHE
  Company Number: US-ROCHE-10000243863

PATIENT
  Age: 66 Year
  Sex: Female

DRUGS (2)
  1. VISMODEGIB [Suspect]
     Active Substance: VISMODEGIB
     Indication: Basal cell naevus syndrome
     Route: 065
  2. MINOXIDIL [Concomitant]
     Active Substance: MINOXIDIL

REACTIONS (1)
  - Alopecia [Unknown]
